FAERS Safety Report 5010227-6 (Version None)
Quarter: 2006Q2

REPORT INFORMATION
  Report Type: 
  Country: None (occurrence: None)
  Receive Date: 20060404
  Receipt Date: 20051128
  Transmission Date: 20061013
  Serious: No
  Sender: FDA-Public Use
  Company Number: US200511003256

PATIENT
  Sex: Male

DRUGS (1)
  1. CYMBALTA [Suspect]
     Indication: POST HERPETIC NEURALGIA
     Dosage: 60 MG, DAILY (1/D)
     Dates: start: 20050414, end: 20050926

REACTIONS (2)
  - NERVOUSNESS [None]
  - RESTLESSNESS [None]
